FAERS Safety Report 7678491-2 (Version None)
Quarter: 2011Q3

REPORT INFORMATION
  Report Type: 
  Country: None (occurrence: None)
  Receive Date: 20110811
  Receipt Date: 20110809
  Transmission Date: 20111222
  Serious: Yes (Hospitalization)
  Sender: FDA-Public Use
  Company Number: IT-PFIZER INC-2011175500

PATIENT
  Age: 67 Year
  Sex: Male

DRUGS (1)
  1. PIPERACILLIN AND TAZOBACTAM [Suspect]
     Indication: PYREXIA
     Dosage: 18 G, 1X/DAY
     Route: 042
     Dates: start: 20110719, end: 20110719

REACTIONS (2)
  - ANGIOEDEMA [None]
  - URTICARIA [None]
